FAERS Safety Report 4864343-X (Version None)
Quarter: 2005Q4

REPORT INFORMATION
  Report Type: 
  Country: None (occurrence: None)
  Receive Date: 20051222
  Receipt Date: 20050913
  Transmission Date: 20060501
  Serious: Yes (Hospitalization, Disabling)
  Sender: FDA-Public Use
  Company Number: US-MERCK-0509USA01832

PATIENT
  Age: 49 Year
  Sex: Female
  Weight: 61 kg

DRUGS (6)
  1. VIOXX [Suspect]
     Indication: BACK PAIN
     Route: 048
     Dates: start: 20010701, end: 20040101
  2. VIOXX [Suspect]
     Indication: PAIN
     Route: 048
     Dates: start: 20010701, end: 20040101
  3. DESYREL [Concomitant]
     Indication: DEPRESSION
     Route: 065
     Dates: start: 19990601, end: 20010901
  4. AMITRIPTYLINE HYDROCHLORIDE [Concomitant]
     Indication: DEPRESSION
     Route: 065
     Dates: start: 19970101, end: 19990601
  5. AMITRIPTYLINE HYDROCHLORIDE [Concomitant]
     Indication: INSOMNIA
     Route: 065
     Dates: start: 19970101, end: 19990601
  6. IBUPROFEN [Concomitant]
     Indication: PAIN
     Route: 065

REACTIONS (13)
  - ANTIPHOSPHOLIPID SYNDROME [None]
  - BLOOD CHOLESTEROL INCREASED [None]
  - BLOOD PRESSURE INCREASED [None]
  - BLOOD TRIGLYCERIDES INCREASED [None]
  - CEREBRAL INFARCTION [None]
  - CHOLELITHIASIS [None]
  - DEPRESSION [None]
  - ENTEROCOCCAL INFECTION [None]
  - HAEMORRHAGIC STROKE [None]
  - HEPATITIS [None]
  - PROTEIN S DEFICIENCY [None]
  - RESPIRATORY FAILURE [None]
  - URINARY TRACT INFECTION [None]
